FAERS Safety Report 8006831-3 (Version None)
Quarter: 2011Q4

REPORT INFORMATION
  Report Type: 
  Country: None (occurrence: None)
  Receive Date: 20111227
  Receipt Date: 20111219
  Transmission Date: 20120403
  Serious: Yes (Other)
  Sender: FDA-Public Use
  Company Number: US-JNJFOC-20111209834

PATIENT
  Sex: Male
  Weight: 52.62 kg

DRUGS (7)
  1. FENTANYL-100 [Suspect]
     Indication: PAIN
     Route: 062
  2. VITAMIN D W/ CALCIUM [Concomitant]
     Indication: NUTRITIONAL SUPPORT
     Dosage: 1200/TABLET/DAILY
     Route: 048
  3. FENTANYL-100 [Suspect]
     Route: 062
  4. VITAMINS (NOS) [Concomitant]
     Indication: NUTRITIONAL SUPPORT
     Route: 048
  5. FENTANYL-100 [Suspect]
     Route: 062
  6. FENTANYL-100 [Suspect]
     Route: 062
     Dates: end: 20110501
  7. FENTANYL-100 [Suspect]
     Indication: PAIN
     Route: 062
     Dates: start: 20110601, end: 20111101

REACTIONS (12)
  - RIB FRACTURE [None]
  - THERAPY CESSATION [None]
  - DECREASED APPETITE [None]
  - FALL [None]
  - ADVERSE EVENT [None]
  - HAND FRACTURE [None]
  - DRUG WITHDRAWAL SYNDROME [None]
  - FEELING ABNORMAL [None]
  - DRUG DIVERSION [None]
  - DRUG DOSE OMISSION [None]
  - ABNORMAL LOSS OF WEIGHT [None]
  - INADEQUATE ANALGESIA [None]
